FAERS Safety Report 9285812 (Version 2)
Quarter: 2013Q2

REPORT INFORMATION
  Report Type: Spontaneous
  Country: DE (occurrence: DE)
  Receive Date: 20130513
  Receipt Date: 20130513
  Transmission Date: 20140414
  Serious: Yes (Hospitalization, Other)
  Sender: FDA-Public Use
  Company Number: DE-PFIZER INC-HQ1544601JUN2001

PATIENT
  Age: 40 Year
  Sex: Male

DRUGS (15)
  1. PANTOZOL [Suspect]
     Dosage: UNKNOWN
     Route: 065
     Dates: start: 200101
  2. RIFUN [Suspect]
     Indication: GASTRITIS
     Dosage: 20 MG, 2X/DAY
     Route: 048
     Dates: start: 20010205, end: 20010213
  3. ACETYLSALICYLIC ACID [Concomitant]
     Route: 065
  4. PHOSPHONORM [Concomitant]
     Route: 048
  5. AMLODIPINE [Concomitant]
     Route: 048
  6. CALCIUM ACETATE [Concomitant]
     Route: 065
  7. CICLOSPORIN [Concomitant]
     Dosage: UNK
     Route: 065
     Dates: start: 200012
  8. CLONIDINE [Concomitant]
     Route: 065
  9. NEUROTRAT FORTE [Concomitant]
     Route: 065
  10. NEPRESOL [Concomitant]
     Route: 065
  11. DIBLOCIN [Concomitant]
     Route: 065
  12. GANCICLOVIR SODIUM [Concomitant]
     Route: 065
  13. INSULIN [Concomitant]
     Route: 058
  14. CELLCEPT [Concomitant]
     Route: 065
  15. DECORTIN [Concomitant]
     Route: 065

REACTIONS (4)
  - Pancytopenia [Unknown]
  - Thrombocytopenia [Unknown]
  - Leukopenia [Unknown]
  - Haemoglobin decreased [Unknown]
